FAERS Safety Report 6755014-3 (Version None)
Quarter: 2010Q2

REPORT INFORMATION
  Report Type: 
  Country: None (occurrence: None)
  Receive Date: 20100602
  Receipt Date: 20100529
  Transmission Date: 20101027
  Serious: Yes (Disabling, Other)
  Sender: FDA-Public Use
  Company Number: AUR-APL-2010-00983

PATIENT
  Age: 70 Year
  Sex: Female
  Weight: 55.33 kg

DRUGS (1)
  1. MELOXICAM [Suspect]
     Indication: ARTHRITIS
     Dosage: 7.5MG - DAILY - ORAL
     Route: 048
     Dates: start: 20090515, end: 20091030

REACTIONS (4)
  - BACK PAIN [None]
  - PATHOLOGICAL FRACTURE [None]
  - SPINAL COMPRESSION FRACTURE [None]
  - SPINAL FRACTURE [None]
